FAERS Safety Report 23494095 (Version 1)
Quarter: 2024Q1

REPORT INFORMATION
  Report Type: Spontaneous
  Country: BR (occurrence: BR)
  Receive Date: 20240207
  Receipt Date: 20240207
  Transmission Date: 20240410
  Serious: Yes (Other)
  Sender: FDA-Public Use
  Company Number: BR-PHATHOM PHARMACEUTICALS INC.-2024PHT00037

PATIENT
  Age: 77 Year
  Sex: Male

DRUGS (3)
  1. VONOPRAZAN FUMARATE [Suspect]
     Active Substance: VONOPRAZAN FUMARATE
     Indication: Productive cough
     Dosage: UNK, 1X/DAY
     Route: 065
     Dates: start: 20231110
  2. LOSARTAN [Concomitant]
     Active Substance: LOSARTAN
  3. HYDROCHLOROTHIAZIDE [Concomitant]
     Active Substance: HYDROCHLOROTHIAZIDE
     Indication: Hypertension

REACTIONS (8)
  - Open fracture [Unknown]
  - Loss of consciousness [Unknown]
  - Off label use [Unknown]
  - Lower limb fracture [Unknown]
  - Blood pressure decreased [Unknown]
  - Road traffic accident [Unknown]
  - Pain in extremity [Unknown]
  - Fear of falling [Unknown]

NARRATIVE: CASE EVENT DATE: 20231110
